FAERS Safety Report 12929353 (Version 1)
Quarter: 2016Q4

REPORT INFORMATION
  Report Type: Report from Study
  Country: US (occurrence: US)
  Receive Date: 20161110
  Receipt Date: 20161110
  Transmission Date: 20170207
  Serious: Yes (Other)
  Sender: FDA-Public Use
  Company Number: US-BRISTOL-MYERS SQUIBB COMPANY-BMS-2015-094146

PATIENT
  Age: 61 Year
  Sex: Female

DRUGS (2)
  1. IPILIMUMAB [Suspect]
     Active Substance: IPILIMUMAB
     Indication: METASTATIC MALIGNANT MELANOMA
     Dosage: UNK UNK, Q3WK
     Route: 042
     Dates: start: 20151201
  2. NIVOLUMAB [Suspect]
     Active Substance: NIVOLUMAB
     Indication: METASTATIC MALIGNANT MELANOMA
     Dosage: UNK UNK, Q3WK
     Route: 042
     Dates: start: 20151201

REACTIONS (45)
  - Dizziness [Unknown]
  - Melanocytic naevus [Recovering/Resolving]
  - Dry eye [Unknown]
  - Cough [Recovering/Resolving]
  - Muscular weakness [Unknown]
  - Malaise [Unknown]
  - Bladder irritation [Unknown]
  - Anxiety [Unknown]
  - Dysgeusia [Unknown]
  - Mole excision [Unknown]
  - Eye pain [Unknown]
  - Headache [Recovered/Resolved]
  - Decreased appetite [Unknown]
  - Hyperaesthesia [Unknown]
  - Throat irritation [Unknown]
  - Eye pruritus [Unknown]
  - Fatigue [Unknown]
  - Ageusia [Unknown]
  - Abdominal discomfort [Unknown]
  - Wheezing [Unknown]
  - Back pain [Unknown]
  - Influenza like illness [Unknown]
  - Arthralgia [Unknown]
  - Weight decreased [Unknown]
  - Nausea [Unknown]
  - Infrequent bowel movements [Unknown]
  - Irritability [Unknown]
  - Chills [Recovered/Resolved]
  - Asthenia [Unknown]
  - Myalgia [Unknown]
  - Rash macular [Unknown]
  - Pruritus [Recovered/Resolved]
  - Neck pain [Unknown]
  - Sternal fracture [Unknown]
  - Rash [Recovered/Resolved]
  - Muscle twitching [Recovered/Resolved]
  - Abdominal pain [Unknown]
  - Painful respiration [Unknown]
  - Hot flush [Recovering/Resolving]
  - Disorientation [Unknown]
  - Abdominal pain upper [Unknown]
  - Chest pain [Recovering/Resolving]
  - Rhinorrhoea [Unknown]
  - Gait disturbance [Unknown]
  - Musculoskeletal stiffness [Recovering/Resolving]

NARRATIVE: CASE EVENT DATE: 20151222
